FAERS Safety Report 14954476 (Version 1)
Quarter: 2018Q2

REPORT INFORMATION
  Report Type: Spontaneous
  Country: US (occurrence: US)
  Receive Date: 20180530
  Receipt Date: 20180530
  Transmission Date: 20180711
  Serious: No
  Sender: FDA-Public Use
  Company Number: US-SHIRE-US201820372

PATIENT
  Age: 59 Year
  Sex: Female

DRUGS (1)
  1. XIIDRA [Suspect]
     Active Substance: LIFITEGRAST
     Indication: PRODUCT USED FOR UNKNOWN INDICATION
     Dosage: UNK
     Route: 065
     Dates: start: 20180517, end: 20180519

REACTIONS (2)
  - Instillation site pain [Recovered/Resolved]
  - Instillation site erythema [Recovered/Resolved]

NARRATIVE: CASE EVENT DATE: 20180517
